FAERS Safety Report 6126193-6 (Version None)
Quarter: 2009Q1

REPORT INFORMATION
  Report Type: 
  Country: None (occurrence: None)
  Receive Date: 20090320
  Receipt Date: 20090311
  Transmission Date: 20090719
  Serious: Yes (Hospitalization)
  Sender: FDA-Public Use
  Company Number: B0564461A

PATIENT
  Age: 65 Year
  Sex: Male

DRUGS (17)
  1. SERETIDE [Suspect]
     Indication: BRONCHOPNEUMOPATHY
     Route: 055
  2. SPORANOX [Suspect]
     Indication: ASPERGILLOSIS
     Dosage: 200MG PER DAY
     Route: 048
     Dates: start: 20080317, end: 20080615
  3. OFLOCET [Suspect]
     Dosage: 400MG PER DAY
     Route: 048
     Dates: start: 20081030
  4. ZECLAR [Suspect]
     Dosage: 1000MG PER DAY
     Route: 048
     Dates: start: 20080703
  5. SYMBICORT [Suspect]
     Indication: BRONCHOPNEUMOPATHY
     Route: 055
  6. SPIRIVA [Concomitant]
     Indication: DRUG USE FOR UNKNOWN INDICATION
     Route: 065
  7. BRICANYL [Concomitant]
     Indication: DRUG USE FOR UNKNOWN INDICATION
     Route: 065
  8. BRONCHODUAL [Concomitant]
     Indication: DRUG USE FOR UNKNOWN INDICATION
     Route: 065
  9. THEOSTAT [Concomitant]
     Indication: DRUG USE FOR UNKNOWN INDICATION
     Route: 065
  10. EFFEXOR [Concomitant]
     Indication: DRUG USE FOR UNKNOWN INDICATION
     Route: 065
  11. XANAX [Concomitant]
     Indication: DRUG USE FOR UNKNOWN INDICATION
     Route: 065
  12. LAROXYL [Concomitant]
     Indication: DRUG USE FOR UNKNOWN INDICATION
     Route: 065
  13. ATARAX [Concomitant]
     Indication: DRUG USE FOR UNKNOWN INDICATION
     Route: 065
  14. IMOVANE [Concomitant]
     Indication: DRUG USE FOR UNKNOWN INDICATION
     Route: 065
  15. REPAGLINIDE [Concomitant]
     Indication: DRUG USE FOR UNKNOWN INDICATION
     Route: 065
  16. TANAKAN [Concomitant]
     Indication: DRUG USE FOR UNKNOWN INDICATION
     Route: 065
  17. ACTONEL [Concomitant]
     Indication: DRUG USE FOR UNKNOWN INDICATION
     Route: 065

REACTIONS (21)
  - ADRENAL INSUFFICIENCY [None]
  - AMYOTROPHY [None]
  - ASCITES [None]
  - BEDRIDDEN [None]
  - BLOOD CHROMOGRANIN A INCREASED [None]
  - BLOOD CORTISOL DECREASED [None]
  - BLOOD CREATININE DECREASED [None]
  - BLOOD UREA INCREASED [None]
  - CHOLESTASIS [None]
  - DIABETES MELLITUS [None]
  - DYSPNOEA [None]
  - ENDOCRINE NEOPLASM [None]
  - HEPATIC LESION [None]
  - HYPOALBUMINAEMIA [None]
  - MUSCULAR WEAKNESS [None]
  - MYELOCYTOSIS [None]
  - OEDEMA PERIPHERAL [None]
  - PANCREATIC DISORDER [None]
  - RENAL FAILURE [None]
  - RHABDOMYOLYSIS [None]
  - WEIGHT INCREASED [None]
